FAERS Safety Report 7097837-X (Version None)
Quarter: 2010Q4

REPORT INFORMATION
  Report Type: 
  Country: None (occurrence: None)
  Receive Date: 20101112
  Receipt Date: 20100908
  Transmission Date: 20110411
  Serious: Yes (Other)
  Sender: FDA-Public Use
  Company Number: US-BAYER-200941002NA

PATIENT
  Age: 19 Year
  Sex: Female
  Weight: 112 kg

DRUGS (7)
  1. YASMIN [Suspect]
     Indication: DYSMENORRHOEA
     Route: 048
     Dates: start: 20020301, end: 20050101
  2. YASMIN [Suspect]
     Route: 048
     Dates: start: 20070101, end: 20080701
  3. SYMAX [Concomitant]
     Indication: NAUSEA
     Dosage: SIX TABLETS DAILY
  4. PHENERGAN [Concomitant]
     Dosage: ONE Q4H PRN
  5. NEXIUM [Concomitant]
  6. ULTRAM [Concomitant]
     Dosage: ONE Q4H PRN
  7. TRI-SPRINTEC [Concomitant]
     Dates: start: 20071126

REACTIONS (6)
  - ABDOMINAL PAIN [None]
  - CHANGE OF BOWEL HABIT [None]
  - CHOLECYSTITIS CHRONIC [None]
  - CHOLELITHIASIS [None]
  - NAUSEA [None]
  - VOMITING [None]
